FAERS Safety Report 21043702 (Version 1)
Quarter: 2022Q3

REPORT INFORMATION
  Report Type: Report from Study
  Country: BR (occurrence: BR)
  Receive Date: 20220705
  Receipt Date: 20220705
  Transmission Date: 20221027
  Serious: Yes (Other)
  Sender: FDA-Public Use
  Company Number: BR-Merck Healthcare KGaA-9332695

PATIENT
  Age: 62 Year
  Sex: Male
  Weight: 36 kg

DRUGS (1)
  1. CETUXIMAB [Suspect]
     Active Substance: CETUXIMAB
     Indication: Rectal cancer metastatic
     Dosage: UNK UNK, 2/M
     Route: 042
     Dates: start: 20210909

REACTIONS (2)
  - Weight decreased [Recovering/Resolving]
  - Off label use [Unknown]
